FAERS Safety Report 9468943 (Version 1)
Quarter: 2013Q3

REPORT INFORMATION
  Report Type: Spontaneous
  Country: DE (occurrence: None)
  Receive Date: 20130815
  Receipt Date: 20130815
  Transmission Date: 20140515
  Serious: Yes (Hospitalization, Other)
  Sender: FDA-Public Use
  Company Number: AUR-APL-2013-06567

PATIENT
  Age: 1 Day
  Sex: Male
  Weight: 3.65 kg

DRUGS (1)
  1. SERTRALINE (SERTRALINE) [Suspect]
     Route: 064

REACTIONS (2)
  - Agitation neonatal [None]
  - Foetal exposure during pregnancy [None]
